FAERS Safety Report 6759426-3 (Version None)
Quarter: 2010Q2

REPORT INFORMATION
  Report Type: 
  Country: None (occurrence: None)
  Receive Date: 20100602
  Receipt Date: 20100527
  Transmission Date: 20101027
  Serious: Yes (Hospitalization, Other)
  Sender: FDA-Public Use
  Company Number: USA/USA/10/0013319

PATIENT
  Age: 80 Year
  Sex: Female
  Weight: 69.4003 kg

DRUGS (2)
  1. ZOLPIDEM TARTRATE [Suspect]
     Indication: INSOMNIA
     Dosage: 10 MG, 1 IN 1 D, PER ORAL
     Route: 048
     Dates: start: 20080101, end: 20100501
  2. PREDNISONE TAB [Concomitant]

REACTIONS (6)
  - BIOPSY LYMPH GLAND ABNORMAL [None]
  - CATARACT [None]
  - DRUG DEPENDENCE [None]
  - LEUKAEMIA RECURRENT [None]
  - LYMPHOCYTIC LEUKAEMIA [None]
  - VAGINAL OPERATION [None]
